FAERS Safety Report 15308290 (Version 3)
Quarter: 2018Q4

REPORT INFORMATION
  Report Type: Spontaneous
  Country: US (occurrence: US)
  Receive Date: 20180822
  Receipt Date: 20181018
  Transmission Date: 20190204
  Serious: Yes (Other)
  Sender: FDA-Public Use
  Company Number: US-BAYER-2018-157138

PATIENT
  Sex: Female

DRUGS (1)
  1. TINACTIN [Suspect]
     Active Substance: TOLNAFTATE
     Indication: TINEA PEDIS

REACTIONS (4)
  - Pain [Unknown]
  - Product caught fire [Unknown]
  - Product monitoring error [Unknown]
  - Burns second degree [Unknown]

NARRATIVE: CASE EVENT DATE: 20180818
